FAERS Safety Report 20526182 (Version 1)
Quarter: 2022Q1

REPORT INFORMATION
  Report Type: Report from Study
  Country: US (occurrence: US)
  Receive Date: 20220228
  Receipt Date: 20220228
  Transmission Date: 20220423
  Serious: No
  Sender: FDA-Public Use
  Company Number: US-HRARD-2021000825

PATIENT
  Sex: Female

DRUGS (12)
  1. METYRAPONE [Suspect]
     Active Substance: METYRAPONE
     Dosage: 250 MG TID
     Route: 048
     Dates: end: 202107
  2. LISINOPRIL [Concomitant]
     Active Substance: LISINOPRIL
  3. GRANIX [Concomitant]
     Active Substance: TBO-FILGRASTIM
  4. FLUDROCORT TAB 0.1MG [Concomitant]
  5. HYDROCORT TAB 10MG [Concomitant]
  6. ENOXAPARIN SODIUM [Concomitant]
     Active Substance: ENOXAPARIN SODIUM
  7. SYNTHROID TAB 75MG (levothyroxine), [Concomitant]
  8. FUROSEMIDE TAB 20MG [Concomitant]
  9. OLANZAPINE TAB 2.5MG [Concomitant]
  10. SPIRONOLACT TAB 25MG [Concomitant]
  11. ESCITALOPRAM [Concomitant]
     Active Substance: ESCITALOPRAM OXALATE
  12. TRAZODONE [Concomitant]
     Active Substance: TRAZODONE HYDROCHLORIDE

REACTIONS (1)
  - Off label use [Unknown]
